FAERS Safety Report 20623668 (Version 1)
Quarter: 2022Q1

REPORT INFORMATION
  Report Type: Spontaneous
  Country: None (occurrence: US)
  Receive Date: 20220322
  Receipt Date: 20220322
  Transmission Date: 20220423
  Serious: Yes (Death)
  Sender: FDA-Public Use
  Company Number: US-Mission Pharmacal Company-2127020

PATIENT
  Age: 79 Year
  Sex: Female

DRUGS (2)
  1. THIOLA EC [Suspect]
     Active Substance: TIOPRONIN
     Indication: Cystinuria
     Route: 048
     Dates: start: 20191023
  2. THIOLA EC [Suspect]
     Active Substance: TIOPRONIN
     Route: 048
     Dates: start: 20191023

REACTIONS (1)
  - Death [Fatal]
